FAERS Safety Report 17651569 (Version 2)
Quarter: 2020Q2

REPORT INFORMATION
  Report Type: Spontaneous
  Country: US (occurrence: US)
  Receive Date: 20200409
  Receipt Date: 20200414
  Transmission Date: 20200713
  Serious: No
  Sender: FDA-Public Use
  Company Number: US-AMGEN INC.-USASP2020056930

PATIENT
  Age: 29 Year
  Sex: Female

DRUGS (1)
  1. AIMOVIG [Suspect]
     Active Substance: ERENUMAB-AOOE
     Indication: MIGRAINE
     Dosage: 70 MILLIGRAM, QMO, UNSUCCESSFUL ATTEMPT
     Route: 065
     Dates: start: 20200405

REACTIONS (3)
  - Device use error [Unknown]
  - Accidental exposure to product [Unknown]
  - Product storage error [Unknown]

NARRATIVE: CASE EVENT DATE: 20200405
